FAERS Safety Report 10420027 (Version 1)
Quarter: 2014Q3

REPORT INFORMATION
  Report Type: Spontaneous
  Country: US (occurrence: None)
  Receive Date: 20140828
  Receipt Date: 20140828
  Transmission Date: 20150326
  Serious: Yes (Hospitalization, Other)
  Sender: FDA-Public Use
  Company Number: 2010S1004588

PATIENT
  Age: 65 Year
  Sex: Male
  Weight: 87 kg

DRUGS (4)
  1. PHOSPHO-SODA [Suspect]
     Active Substance: SODIUM PHOSPHATE, DIBASIC\SODIUM PHOSPHATE, MONOBASIC
     Indication: COLONOSCOPY
     Route: 048
  2. ATENOLOL (ATENOLOL) [Concomitant]
     Active Substance: ATENOLOL
  3. HYDROCHLOROTHIAZIDE (HYDROCHLOROTHIAZIDE) [Concomitant]
     Active Substance: HYDROCHLOROTHIAZIDE
  4. NIFEDIPINE (NIFEDIPINE) (NIFEDIPINE) [Concomitant]
     Active Substance: NIFEDIPINE

REACTIONS (21)
  - Cholelithiasis [None]
  - Fluid overload [None]
  - Cardiac failure congestive [None]
  - Gallbladder polyp [None]
  - Glomerulonephritis chronic [None]
  - Anaemia [None]
  - Liver disorder [None]
  - Polyp [None]
  - Neuropathy peripheral [None]
  - Haemorrhoids [None]
  - Treatment noncompliance [None]
  - Injury [None]
  - Renal failure acute [None]
  - Hypertension [None]
  - Renal failure chronic [None]
  - Restless legs syndrome [None]
  - Nephrosclerosis [None]
  - Diverticulum [None]
  - Pain in extremity [None]
  - Blood phosphorus decreased [None]
  - Pulmonary oedema [None]

NARRATIVE: CASE EVENT DATE: 20061108
